FAERS Safety Report 6914862-7 (Version None)
Quarter: 2010Q3

REPORT INFORMATION
  Report Type: 
  Country: None (occurrence: None)
  Receive Date: 20100809
  Receipt Date: 20100706
  Transmission Date: 20110219
  Serious: Yes (Hospitalization)
  Sender: FDA-Public Use
  Company Number: US-ASTRAZENECA-2010SE31271

PATIENT
  Sex: Female

DRUGS (9)
  1. SYMBICORT [Suspect]
     Indication: ASTHMA
     Route: 055
  2. ADVAIR DISKUS 100/50 [Suspect]
     Dosage: 250/50 MCG1 PUFF VARIABLE DOSE
     Route: 055
     Dates: start: 20090101
  3. NEURONTIN [Suspect]
     Route: 065
  4. ATIVAN [Concomitant]
  5. ACTONEL [Concomitant]
  6. BENTYL [Concomitant]
  7. BUPAP [Concomitant]
  8. LEXAPRO [Concomitant]
  9. REMERON [Concomitant]

REACTIONS (3)
  - BLOOD SODIUM DECREASED [None]
  - FEELING ABNORMAL [None]
  - IRRITABLE BOWEL SYNDROME [None]
